FAERS Safety Report 9688176 (Version 1)
Quarter: 2013Q4

REPORT INFORMATION
  Report Type: Report from Study
  Country: US (occurrence: US)
  Receive Date: 20131114
  Receipt Date: 20131114
  Transmission Date: 20140711
  Serious: Yes (Other)
  Sender: FDA-Public Use
  Company Number: US-JNJFOC-20131104386

PATIENT
  Sex: Male
  Weight: 102.06 kg

DRUGS (1)
  1. REMICADE [Suspect]
     Indication: RHEUMATOID ARTHRITIS
     Dosage: ABOUT 4 YEARS AGO
     Route: 042

REACTIONS (1)
  - Stomach mass [Recovered/Resolved]
